FAERS Safety Report 5181005-2 (Version None)
Quarter: 2006Q4

REPORT INFORMATION
  Report Type: 
  Country: None (occurrence: None)
  Receive Date: 20061212
  Receipt Date: 20061130
  Transmission Date: 20070319
  Serious: Yes (Other)
  Sender: FDA-Public Use
  Company Number: HQWYE554725OCT06

PATIENT

DRUGS (1)
  1. AMIODARONE HCL [Suspect]
     Dosage: 200 MG TABLET; ORAL
     Route: 048

REACTIONS (1)
  - PNEUMONIA BACTERIAL [None]
